FAERS Safety Report 7319972-0 (Version None)
Quarter: 2011Q1

REPORT INFORMATION
  Report Type: 
  Country: None (occurrence: None)
  Receive Date: 20110228
  Receipt Date: 20110224
  Transmission Date: 20110831
  Serious: Yes (Life-Threatening, Hospitalization)
  Sender: FDA-Public Use
  Company Number: PHHY2011FR11203

PATIENT
  Age: 44 Year
  Sex: Male

DRUGS (4)
  1. ANTIPSYCHOTICS [Concomitant]
  2. AMLOR [Suspect]
     Dosage: 20 TABS IN SINGLE INTAKE
     Route: 048
     Dates: start: 20110131
  3. RASILEZ [Suspect]
     Dosage: 1 PACKET OF 20 TABS IN SINGLE INTAKE
     Route: 048
     Dates: start: 20110131
  4. BENZODIAZEPINES [Concomitant]

REACTIONS (5)
  - HYPOTENSION [None]
  - SHOCK [None]
  - VASOPLEGIA SYNDROME [None]
  - COMA SCALE ABNORMAL [None]
  - TOXICITY TO VARIOUS AGENTS [None]
